FAERS Safety Report 7876580-0 (Version None)
Quarter: 2011Q4

REPORT INFORMATION
  Report Type: 
  Country: None (occurrence: None)
  Receive Date: 20111031
  Receipt Date: 20111018
  Transmission Date: 20120403
  Serious: Yes (Death, Hospitalization, Other)
  Sender: FDA-Public Use
  Company Number: FR-CELGENEUS-056-50794-11102095

PATIENT

DRUGS (5)
  1. VIDAZA [Suspect]
     Dosage: 75 MILLIGRAM/SQ. METER
     Route: 050
  2. REVLIMID [Suspect]
     Dosage: 10 MILLIGRAM
     Route: 048
  3. VIDAZA [Suspect]
  4. REVLIMID [Suspect]
     Dosage: 5 MILLIGRAM
     Route: 048
  5. IMMUNE CELLS HUMAN [Concomitant]
     Route: 050

REACTIONS (15)
  - DISEASE PROGRESSION [None]
  - TRANSIENT ISCHAEMIC ATTACK [None]
  - HAEMORRHAGE [None]
  - ARRHYTHMIA [None]
  - CELLULITIS [None]
  - NEUTROPENIA [None]
  - CYTOMEGALOVIRUS VIRAEMIA [None]
  - RENAL FAILURE [None]
  - SEPTIC SHOCK [None]
  - FUNGAL INFECTION [None]
  - PYREXIA [None]
  - THROMBOCYTOPENIA [None]
  - MULTI-ORGAN FAILURE [None]
  - CEREBRAL HAEMORRHAGE [None]
  - SEPSIS [None]
